FAERS Safety Report 21580074 (Version 3)
Quarter: 2023Q1

REPORT INFORMATION
  Report Type: Spontaneous
  Country: US (occurrence: US)
  Receive Date: 20221110
  Receipt Date: 20230330
  Transmission Date: 20230418
  Serious: No
  Sender: FDA-Public Use
  Company Number: US-KARYOPHARM-2022KPT001271

PATIENT

DRUGS (20)
  1. XPOVIO [Suspect]
     Active Substance: SELINEXOR
     Indication: Plasma cell myeloma
     Dosage: 40 MG, 2X/WEEK
     Route: 048
     Dates: start: 20221018
  2. ACYCLOVIR [Concomitant]
     Active Substance: ACYCLOVIR
  3. DICLOFENAC [Concomitant]
     Active Substance: DICLOFENAC
  4. DARZALEX [Concomitant]
     Active Substance: DARATUMUMAB
  5. DICYCLOMINE HYDROCHLORIDE [Concomitant]
     Active Substance: DICYCLOMINE HYDROCHLORIDE
  6. DONEPEZIL [Concomitant]
     Active Substance: DONEPEZIL
  7. DOXEPIN [Concomitant]
     Active Substance: DOXEPIN
  8. DOXYCYCLINE [Concomitant]
     Active Substance: DOXYCYCLINE
  9. HYDROXYZINE [Concomitant]
     Active Substance: HYDROXYZINE HYDROCHLORIDE
  10. KETOROLAC [Concomitant]
     Active Substance: KETOROLAC TROMETHAMINE
  11. LIDOCAINE [Concomitant]
     Active Substance: LIDOCAINE
  12. LINZESS [Concomitant]
     Active Substance: LINACLOTIDE
  13. MYRBETRIQ [Concomitant]
     Active Substance: MIRABEGRON
  14. OXYCONTIN [Concomitant]
     Active Substance: OXYCODONE HYDROCHLORIDE
  15. PANTOPRAZOLE [Concomitant]
     Active Substance: PANTOPRAZOLE
  16. SYMPROIC [Concomitant]
     Active Substance: NALDEMEDINE
  17. TRINTELLIX [Concomitant]
     Active Substance: VORTIOXETINE HYDROBROMIDE
  18. XARELTO [Concomitant]
     Active Substance: RIVAROXABAN
  19. ZOFRAN [Concomitant]
     Active Substance: ONDANSETRON HYDROCHLORIDE
  20. DRONABINOL [Concomitant]
     Active Substance: DRONABINOL

REACTIONS (4)
  - Abdominal discomfort [Unknown]
  - Malaise [Unknown]
  - Confusional state [Not Recovered/Not Resolved]
  - Nausea [Recovering/Resolving]

NARRATIVE: CASE EVENT DATE: 20220101
